FAERS Safety Report 20225211 (Version 1)
Quarter: 2021Q4

REPORT INFORMATION
  Report Type: Other
  Country: US (occurrence: None)
  Receive Date: 20211223
  Receipt Date: 20211223
  Transmission Date: 20220303
  Serious: Yes (Other)
  Sender: FDA-Public Use
  Company Number: US-ROCHE-616266

PATIENT
  Age: 58 Year
  Sex: Female

DRUGS (2)
  1. BEVACIZUMAB [Suspect]
     Active Substance: BEVACIZUMAB
     Indication: Diabetic retinal oedema
     Dosage: 1.25MG IN 0.05ML
     Route: 050
  2. BEVACIZUMAB [Suspect]
     Active Substance: BEVACIZUMAB
     Indication: Diabetic retinopathy

REACTIONS (3)
  - Visual acuity reduced [Not Recovered/Not Resolved]
  - Off label use [Unknown]
  - Off label use [Unknown]
